FAERS Safety Report 7967576-9 (Version None)
Quarter: 2011Q4

REPORT INFORMATION
  Report Type: 
  Country: None (occurrence: None)
  Receive Date: 20111207
  Receipt Date: 20111128
  Transmission Date: 20120403
  Serious: Yes (Life-Threatening, Hospitalization)
  Sender: FDA-Public Use
  Company Number: 2011ST000320

PATIENT
  Age: 9 Year
  Sex: Female
  Weight: 39.5 kg

DRUGS (5)
  1. VINCRISTINE [Concomitant]
  2. METHOTREXATE [Concomitant]
  3. KETAMINE HCL [Concomitant]
  4. MIDAZOLAM [Concomitant]
  5. ONCASPAR [Suspect]
     Indication: ACUTE LYMPHOCYTIC LEUKAEMIA
     Dosage: 3125 IU, X1, IV
     Route: 042
     Dates: start: 20110920, end: 20110920

REACTIONS (8)
  - FLUSHING [None]
  - INFUSION RELATED REACTION [None]
  - CYANOSIS [None]
  - HYPERSENSITIVITY [None]
  - DYSPNOEA [None]
  - VOMITING [None]
  - CHEST DISCOMFORT [None]
  - HYPOTONIA [None]
